FAERS Safety Report 14316388 (Version 1)
Quarter: 2017Q4

REPORT INFORMATION
  Report Type: Spontaneous
  Country: US (occurrence: US)
  Receive Date: 20171222
  Receipt Date: 20171222
  Transmission Date: 20180321
  Serious: Yes (Other)
  Sender: FDA-Public Use
  Company Number: US-JNJFOC-20171213789

PATIENT
  Age: 91 Year
  Sex: Female

DRUGS (2)
  1. AVEENO ACTIVE NATURALS SMART ESSENTIALS DAILY NOURISHING MOISTURIZER SPF 30 [Suspect]
     Active Substance: AVOBENZONE\HOMOSALATE\OCTISALATE\OCTOCRYLENE\OXYBENZONE
     Indication: DRY SKIN PROPHYLAXIS
     Route: 061
     Dates: start: 201711
  2. AVEENO ACTIVE NATURALS SMART ESSENTIALS DAILY NOURISHING MOISTURIZER SPF 30 [Suspect]
     Active Substance: AVOBENZONE\HOMOSALATE\OCTISALATE\OCTOCRYLENE\OXYBENZONE
     Indication: PROPHYLAXIS
     Route: 061
     Dates: start: 201711

REACTIONS (1)
  - Precancerous skin lesion [Not Recovered/Not Resolved]

NARRATIVE: CASE EVENT DATE: 20171207
